FAERS Safety Report 17702624 (Version 2)
Quarter: 2020Q2

REPORT INFORMATION
  Report Type: Spontaneous
  Country: US (occurrence: US)
  Receive Date: 20200423
  Receipt Date: 20200423
  Transmission Date: 20200714
  Serious: No
  Sender: FDA-Public Use
  Company Number: US-BRACCO-2020US00320

PATIENT
  Age: 29 Year
  Sex: Female

DRUGS (1)
  1. VOLUMEN [Suspect]
     Active Substance: BARIUM SULFATE
     Indication: ENTEROCLYSIS
     Dosage: 3 BOTTLES FOR A TOTAL OF 1350 ML, SINGLE
     Route: 048
     Dates: start: 20200120, end: 20200120

REACTIONS (2)
  - Expired product administered [Unknown]
  - No adverse event [Unknown]

NARRATIVE: CASE EVENT DATE: 20200120
